FAERS Safety Report 7134114-2 (Version None)
Quarter: 2010Q4

REPORT INFORMATION
  Report Type: 
  Country: None (occurrence: None)
  Receive Date: 20101117
  Receipt Date: 20101117
  Transmission Date: 20110411
  Serious: Yes (Death)
  Sender: FDA-Public Use
  Company Number: 2010S1000941

PATIENT
  Age: 81 Year
  Sex: Male

DRUGS (1)
  1. LIVALO [Suspect]
     Indication: HYPERCHOLESTEROLAEMIA
     Dosage: 2 MG;1X;PO
     Route: 048
     Dates: start: 20070914, end: 20100827

REACTIONS (1)
  - ADENOSQUAMOUS CELL LUNG CANCER [None]
